FAERS Safety Report 5896088-1 (Version None)
Quarter: 2008Q3

REPORT INFORMATION
  Report Type: 
  Country: None (occurrence: None)
  Receive Date: 20080924
  Receipt Date: 20080924
  Transmission Date: 20090109
  Serious: Yes (Death, Other)
  Sender: FDA-Public Use
  Company Number: JP-B.I. PHARMACEUTICALS,INC./RIDGEFIELD-2008-BP-14768NB

PATIENT
  Age: 73 Year
  Sex: Male

DRUGS (3)
  1. MICARDIS [Suspect]
     Indication: HYPERTENSION
     Dosage: 20MG
     Route: 048
     Dates: start: 20060518, end: 20070707
  2. ADALAT [Concomitant]
     Dosage: 40MG
     Route: 048
  3. NOVOLIN R [Concomitant]
     Dosage: 16U
     Route: 058

REACTIONS (1)
  - LUNG NEOPLASM MALIGNANT [None]
